FAERS Safety Report 20329352 (Version 1)
Quarter: 2022Q1

REPORT INFORMATION
  Report Type: Spontaneous
  Country: None (occurrence: US)
  Receive Date: 20220112
  Receipt Date: 20220112
  Transmission Date: 20220424
  Serious: No
  Sender: FDA-Public Use
  Company Number: US-Akron, Inc.-2123869

PATIENT
  Age: 21 Year
  Sex: Male

DRUGS (1)
  1. MYORISAN [Suspect]
     Active Substance: ISOTRETINOIN
     Route: 048
     Dates: start: 20211008

REACTIONS (1)
  - Tinnitus [Unknown]

NARRATIVE: CASE EVENT DATE: 20211008
